FAERS Safety Report 21771106 (Version 3)
Quarter: 2023Q2

REPORT INFORMATION
  Report Type: Other
  Country: JP (occurrence: JP)
  Receive Date: 20221223
  Receipt Date: 20230518
  Transmission Date: 20230722
  Serious: Yes (Hospitalization)
  Sender: FDA-Public Use
  Company Number: JP-CHUGAI-2022050688AA

PATIENT
  Age: 62 Year

DRUGS (3)
  1. OBINUTUZUMAB [Suspect]
     Active Substance: OBINUTUZUMAB
     Indication: Follicular lymphoma
     Route: 041
  2. BENDAMUSTINE HYDROCHLORIDE [Suspect]
     Active Substance: BENDAMUSTINE HYDROCHLORIDE
     Indication: Follicular lymphoma
     Route: 041
  3. BENDAMUSTINE HYDROCHLORIDE [Concomitant]
     Active Substance: BENDAMUSTINE HYDROCHLORIDE
     Indication: Follicular lymphoma
     Dosage: UNK
     Route: 041

REACTIONS (1)
  - COVID-19 pneumonia [Recovering/Resolving]

NARRATIVE: CASE EVENT DATE: 20221110
